FAERS Safety Report 22099918 (Version 1)
Quarter: 2023Q1

REPORT INFORMATION
  Report Type: Spontaneous
  Country: US (occurrence: US)
  Receive Date: 20230315
  Receipt Date: 20230315
  Transmission Date: 20230418
  Serious: No
  Sender: FDA-Public Use
  Company Number: US-BRISTOL-MYERS SQUIBB COMPANY-2023-038052

PATIENT
  Age: 61 Year
  Sex: Male
  Weight: 132.45 kg

DRUGS (1)
  1. REVLIMID [Suspect]
     Active Substance: LENALIDOMIDE
     Indication: Plasma cell myeloma
     Dosage: FREQ : TAKING FOR 21 DAYS ON, UNSURE HOW LONG OFF.
     Route: 048

REACTIONS (1)
  - Adverse event [Unknown]
